FAERS Safety Report 4435480-9 (Version None)
Quarter: 2004Q3

REPORT INFORMATION
  Report Type: 
  Country: None (occurrence: None)
  Receive Date: 20040726
  Receipt Date: 20040507
  Transmission Date: 20050211
  Serious: No
  Sender: FDA-Public Use
  Company Number: USA040466320

PATIENT
  Age: 90 Year
  Sex: Female
  Weight: 39 kg

DRUGS (1)
  1. FORTEO [Suspect]
     Indication: BONE SCAN ABNORMAL
     Dosage: 20 UG/1 DAY
     Dates: start: 20040416

REACTIONS (5)
  - ABDOMINAL PAIN UPPER [None]
  - FEELING HOT [None]
  - HYPERHIDROSIS [None]
  - ILLUSION [None]
  - LOOSE STOOLS [None]
